FAERS Safety Report 22057424 (Version 1)
Quarter: 2023Q1

REPORT INFORMATION
  Report Type: Spontaneous
  Country: BR (occurrence: None)
  Receive Date: 20230303
  Receipt Date: 20230303
  Transmission Date: 20230418
  Serious: Yes (Other)
  Sender: FDA-Public Use
  Company Number: BR-ROCHE-3295551

PATIENT
  Age: 40 Year
  Sex: Male
  Weight: 67 kg

DRUGS (3)
  1. EMICIZUMAB [Suspect]
     Active Substance: EMICIZUMAB
     Indication: Factor VIII deficiency
     Route: 065
     Dates: start: 201804
  2. TRIAMCINOLONE [Concomitant]
     Active Substance: TRIAMCINOLONE
     Indication: Product used for unknown indication
     Route: 065
  3. ANTIHEMOPHILIC FACTOR, HUMAN RECOMBINANT [Concomitant]
     Active Substance: ANTIHEMOPHILIC FACTOR, HUMAN RECOMBINANT
     Indication: Factor VIII deficiency
     Route: 065

REACTIONS (5)
  - Femur fracture [Unknown]
  - Knee arthroplasty [Unknown]
  - Haemarthrosis [Unknown]
  - Wound haemorrhage [Unknown]
  - Haemophilic arthropathy [Unknown]

NARRATIVE: CASE EVENT DATE: 20220926
